FAERS Safety Report 19735451 (Version 2)
Quarter: 2021Q3

REPORT INFORMATION
  Report Type: Report from Study
  Country: ZA (occurrence: ZA)
  Receive Date: 20210824
  Receipt Date: 20210922
  Transmission Date: 20211014
  Serious: Yes (Hospitalization)
  Sender: FDA-Public Use
  Company Number: ZA-NOVOPROD-838439

PATIENT
  Sex: Male

DRUGS (8)
  1. DISPRIN CARDIOCARE [Concomitant]
     Active Substance: ASPIRIN
     Indication: ANTICOAGULANT THERAPY
     Dosage: UNK
     Route: 048
  2. PENDINE [AMLODIPINE BESILATE] [Concomitant]
     Indication: PRODUCT USED FOR UNKNOWN INDICATION
     Dosage: UNK
     Route: 048
  3. MYOPRIN [Concomitant]
     Active Substance: ASPIRIN
     Indication: ANTICOAGULANT THERAPY
     Dosage: UNK
     Route: 048
  4. METFORMIN [Concomitant]
     Active Substance: METFORMIN HYDROCHLORIDE
     Indication: DIABETES MELLITUS
     Dosage: UNK
     Route: 048
  5. PREXUM PLUS [INDAPAMIDE;PERINDOPRIL] [Concomitant]
     Active Substance: INDAPAMIDE\PERINDOPRIL
     Indication: HYPERTENSION
     Dosage: UNK
     Route: 048
  6. INDAPAMIDE. [Concomitant]
     Active Substance: INDAPAMIDE
     Indication: DIURETIC THERAPY
     Dosage: UNK
     Route: 048
  7. NOVOMIX 30 FLEXPEN [Suspect]
     Active Substance: INSULIN ASPART
     Indication: DIABETES MELLITUS
     Dosage: 16 IU, BID
     Route: 065
  8. LIPOGEN [CHOLINE;INOSITOL;VITAMINS NOS] [Concomitant]
     Indication: BLOOD CHOLESTEROL ABNORMAL
     Dosage: UNK
     Route: 048

REACTIONS (2)
  - COVID-19 [Unknown]
  - Diabetes mellitus inadequate control [Unknown]
